FAERS Safety Report 15926648 (Version 1)
Quarter: 2019Q1

REPORT INFORMATION
  Report Type: Spontaneous
  Country: US (occurrence: US)
  Receive Date: 20190206
  Receipt Date: 20190206
  Transmission Date: 20190417
  Serious: Yes (Other)
  Sender: FDA-Public Use
  Company Number: US-SUNOVION-2019SUN000348

PATIENT
  Sex: Female

DRUGS (2)
  1. LATUDA [Suspect]
     Active Substance: LURASIDONE HYDROCHLORIDE
     Dosage: 40 MG
     Route: 048
  2. LATUDA [Suspect]
     Active Substance: LURASIDONE HYDROCHLORIDE
     Indication: BIPOLAR DISORDER
     Dosage: 20 MG
     Route: 048

REACTIONS (6)
  - Malaise [Recovering/Resolving]
  - Anger [Not Recovered/Not Resolved]
  - Psychotic disorder [Unknown]
  - Negative thoughts [Recovering/Resolving]
  - Suicidal ideation [Recovered/Resolved]
  - Feeling abnormal [Recovering/Resolving]
